FAERS Safety Report 20956040 (Version 2)
Quarter: 2022Q2

REPORT INFORMATION
  Report Type: Spontaneous
  Country: US (occurrence: None)
  Receive Date: 20220614
  Receipt Date: 20220615
  Transmission Date: 20220721
  Serious: No
  Sender: FDA-Public Use
  Company Number: US-MDD US Operations-MDD202202-000228

PATIENT
  Age: 84 Year
  Sex: Female

DRUGS (23)
  1. APOKYN [Suspect]
     Active Substance: APOMORPHINE HYDROCHLORIDE
     Indication: Parkinson^s disease
     Dates: start: 20220204
  2. APOKYN [Suspect]
     Active Substance: APOMORPHINE HYDROCHLORIDE
     Dates: start: 20220207
  3. CoRet [Concomitant]
     Indication: Hypertension
  4. VERAPAMIL [Concomitant]
     Active Substance: VERAPAMIL HYDROCHLORIDE
     Indication: Hypertension
  5. NORVASC [Concomitant]
     Active Substance: AMLODIPINE BESYLATE
     Indication: Hypertension
  6. LASIX [Concomitant]
     Active Substance: FUROSEMIDE
  7. AMANTADINE [Concomitant]
     Active Substance: AMANTADINE
  8. CARBIDOPA\LEVODOPA [Concomitant]
     Active Substance: CARBIDOPA\LEVODOPA
  9. CARBIDOPA\LEVODOPA [Concomitant]
     Active Substance: CARBIDOPA\LEVODOPA
  10. CARBIDOPA\LEVODOPA [Concomitant]
     Active Substance: CARBIDOPA\LEVODOPA
  11. CARBIDOPA\LEVODOPA [Concomitant]
     Active Substance: CARBIDOPA\LEVODOPA
  12. CARBIDOPA\LEVODOPA [Concomitant]
     Active Substance: CARBIDOPA\LEVODOPA
  13. NOURIANZ [Concomitant]
     Active Substance: ISTRADEFYLLINE
  14. ELIQUIS [Concomitant]
     Active Substance: APIXABAN
  15. COLACE [Concomitant]
     Active Substance: DOCUSATE SODIUM
  16. NEURONTIN [Concomitant]
     Active Substance: GABAPENTIN
     Dosage: 500 MG
  17. RESTORIL [Concomitant]
     Active Substance: TEMAZEPAM
  18. MELATONIN [Concomitant]
     Active Substance: MELATONIN
  19. ADIZEM [Concomitant]
     Active Substance: DILTIAZEM HYDROCHLORIDE
  20. SINEMET CR [Concomitant]
     Active Substance: CARBIDOPA\LEVODOPA
     Dosage: EACH DF OF 25/100
  21. VITAMIN B COMPLEX [Concomitant]
     Active Substance: CYANOCOBALAMIN\DEXPANTHENOL\NIACINAMIDE\PYRIDOXINE HYDROCHLORIDE\RIBOFLAVIN 5^-PHOSPHATE SODIUM\THIA
     Dosage: EACH DF OF 25/100
     Route: 030
  22. VITAMIN B1 [Concomitant]
     Active Substance: THIAMINE HYDROCHLORIDE
     Dosage: NOT PROVIDED
  23. Cocusape - 3 [Concomitant]

REACTIONS (3)
  - Lethargy [Recovered/Resolved]
  - Blood pressure systolic increased [Recovered/Resolved]
  - Tremor [Recovered/Resolved]
